FAERS Safety Report 5855765-9 (Version None)
Quarter: 2008Q3

REPORT INFORMATION
  Report Type: 
  Country: None (occurrence: None)
  Receive Date: 20080825
  Receipt Date: 20080820
  Transmission Date: 20090109
  Serious: Yes (Other)
  Sender: FDA-Public Use
  Company Number: US-BRISTOL-MYERS SQUIBB COMPANY-14310403

PATIENT
  Sex: Male

DRUGS (1)
  1. TEQUIN [Suspect]
     Indication: INFECTION
     Dates: start: 20001023

REACTIONS (4)
  - ANXIETY [None]
  - BLINDNESS UNILATERAL [None]
  - DIABETES MELLITUS [None]
  - HYPOGLYCAEMIA [None]
